FAERS Safety Report 8616050-5 (Version None)
Quarter: 2012Q3

REPORT INFORMATION
  Report Type: 
  Country: None (occurrence: None)
  Receive Date: 20120823
  Receipt Date: 20120731
  Transmission Date: 20120928
  Serious: No
  Sender: FDA-Public Use
  Company Number: US-009507513-2012SP031133

PATIENT

DRUGS (4)
  1. SAPHRIS [Suspect]
     Indication: BIPOLAR DISORDER
     Dosage: 10 MG, BID
     Route: 060
     Dates: start: 20120501, end: 20120601
  2. SAPHRIS [Suspect]
     Dosage: 5 MG, BID
     Route: 060
     Dates: start: 20120530, end: 20120501
  3. SEROQUEL [Concomitant]
     Dosage: 300 MG, HS
  4. LAMICTAL [Concomitant]
     Dosage: 200 MG, UNK

REACTIONS (1)
  - DYSTONIA [None]
